FAERS Safety Report 7473418-0 (Version None)
Quarter: 2011Q2

REPORT INFORMATION
  Report Type: 
  Country: None (occurrence: None)
  Receive Date: 20110503
  Receipt Date: 20110422
  Transmission Date: 20111010
  Serious: Yes (Death, Hospitalization)
  Sender: FDA-Public Use
  Company Number: UTC-006541

PATIENT
  Age: 64 Year
  Sex: Male

DRUGS (4)
  1. ADCIRCA [Concomitant]
  2. DIURETICS [Concomitant]
  3. COUMADIN [Concomitant]
  4. REMODULIN [Suspect]
     Indication: PULMONARY ARTERIAL HYPERTENSION
     Dosage: 37.44 UG/KG (0.026 UG/KG, 1 IN 1 MIN), INTRAVENOUS
     Route: 042
     Dates: start: 20080801

REACTIONS (1)
  - CARDIAC ARREST [None]
